FAERS Safety Report 5005054-X (Version None)
Quarter: 2006Q2

REPORT INFORMATION
  Report Type: 
  Country: None (occurrence: None)
  Receive Date: 20060516
  Receipt Date: 20060516
  Transmission Date: 20061013
  Serious: Yes (Life-Threatening, Hospitalization, Other)
  Sender: FDA-Public Use
  Company Number: None

PATIENT
  Age: 32 Year
  Sex: Female
  Weight: 53.5244 kg

DRUGS (4)
  1. OLANZAPINE [Suspect]
     Indication: BIPOLAR DISORDER
     Dosage: 5 MG     1 HS   PO
     Route: 048
  2. OLANZAPINE [Suspect]
     Indication: DEPRESSION
     Dosage: 5 MG     1 HS   PO
     Route: 048
  3. PROZAC [Concomitant]
  4. ASPIRIN [Concomitant]

REACTIONS (7)
  - CONDITION AGGRAVATED [None]
  - DEPRESSION [None]
  - DRUG INEFFECTIVE [None]
  - ECONOMIC PROBLEM [None]
  - HOMICIDAL IDEATION [None]
  - PHARMACEUTICAL PRODUCT COUNTERFEIT [None]
  - SUICIDE ATTEMPT [None]
